FAERS Safety Report 9328312 (Version 1)
Quarter: 2013Q2

REPORT INFORMATION
  Report Type: Spontaneous
  Country: US (occurrence: US)
  Receive Date: 20130604
  Receipt Date: 20130604
  Transmission Date: 20140414
  Serious: No
  Sender: FDA-Public Use
  Company Number: US-SANOFI-AVENTIS-2012SA066091

PATIENT
  Age: 63 Year
  Sex: Female

DRUGS (9)
  1. LANTUS [Suspect]
     Indication: HYPERGLYCAEMIA
     Dosage: DOSE:10 UNIT(S)
     Route: 058
     Dates: start: 201203
  2. HUMALOG [Suspect]
     Indication: HYPERGLYCAEMIA
     Route: 065
     Dates: start: 201203, end: 20120405
  3. LISINOPRIL W/HYDROCHLOROTHIAZIDE [Suspect]
     Indication: BLOOD PRESSURE
     Dosage: DOSAGE: 20 MG LISINOPRIL + 12.5 MG HYDROCHLOROTHIAZIDE
     Route: 065
     Dates: end: 2012
  4. SIMVASTATIN [Concomitant]
     Indication: BLOOD CHOLESTEROL
  5. MULTIVITAMINS [Concomitant]
  6. ASPIRIN [Concomitant]
  7. CALCIUM [Concomitant]
  8. FISH OIL [Concomitant]
  9. BIOTIN [Concomitant]

REACTIONS (5)
  - Muscular weakness [Recovered/Resolved]
  - Arthropathy [Recovered/Resolved]
  - Alopecia [Unknown]
  - Weight decreased [Unknown]
  - Rash papular [Unknown]
